FAERS Safety Report 13573898 (Version 2)
Quarter: 2017Q3

REPORT INFORMATION
  Report Type: Spontaneous
  Country: US (occurrence: US)
  Receive Date: 20170523
  Receipt Date: 20170915
  Transmission Date: 20171127
  Serious: No
  Sender: FDA-Public Use
  Company Number: US-PFIZER INC-2017222418

PATIENT
  Age: 59 Year

DRUGS (2)
  1. RAPAMUNE [Suspect]
     Active Substance: SIROLIMUS
     Dosage: 2 MG, ALTERNATE DAY (TAKE 3 MG (3 TABS) ONE DAY ALTERNATING WITH 2 MG (2 TABS) THE NEXT DAY)
  2. RAPAMUNE [Suspect]
     Active Substance: SIROLIMUS
     Indication: RENAL TRANSPLANT
     Dosage: 3 MG, ALTERNATE DAY (TAKE 3 MG (3 TABS) ONE DAY ALTERNATING WITH 2 MG (2 TABS) THE NEXT DAY)

REACTIONS (1)
  - Nasopharyngitis [Unknown]
